FAERS Safety Report 5147388-4 (Version None)
Quarter: 2006Q4

REPORT INFORMATION
  Report Type: 
  Country: None (occurrence: None)
  Receive Date: 20061106
  Receipt Date: 20061020
  Transmission Date: 20070319
  Serious: Yes (Death, Hospitalization, Other)
  Sender: FDA-Public Use
  Company Number: 2006085451

PATIENT
  Age: 48 Year
  Sex: Male
  Weight: 86.1834 kg

DRUGS (2)
  1. BEXTRA [Suspect]
     Indication: INTERVERTEBRAL DISC INJURY
     Dosage: 20 MG, ORAL
     Route: 048
     Dates: start: 20030801, end: 20040701
  2. VIOXX [Suspect]
     Route: 048
     Dates: end: 20040718

REACTIONS (2)
  - MYOCARDIAL INFARCTION [None]
  - SUDDEN CARDIAC DEATH [None]
